FAERS Safety Report 11258574 (Version 2)
Quarter: 2015Q2

REPORT INFORMATION
  Report Type: Spontaneous
  Country: US (occurrence: None)
  Receive Date: 20150617
  Receipt Date: 20150617
  Transmission Date: 20150821
  Serious: No
  Sender: FDA-Public Use
  Company Number: 2014TASUS000534

PATIENT
  Age: 63 Year
  Sex: Female
  Weight: 65.8 kg

DRUGS (8)
  1. SYNTHROID [Concomitant]
     Active Substance: LEVOTHYROXINE SODIUM
  2. VENTOLIN HFA [Concomitant]
     Active Substance: ALBUTEROL SULFATE
  3. GABAPENTIN. [Concomitant]
     Active Substance: GABAPENTIN
  4. QVAR (BECLOMETASONE DIPROPIONATE) [Concomitant]
  5. VICODIN HP (HYDROCODONE BITARTRATE, PARACETAMOL) [Concomitant]
  6. OMEPRAZOLE. [Concomitant]
     Active Substance: OMEPRAZOLE
  7. DIOVAN [Concomitant]
     Active Substance: VALSARTAN
  8. HETLIOZ [Suspect]
     Active Substance: TASIMELTEON
     Indication: CIRCADIAN RHYTHM SLEEP DISORDER
     Route: 048
     Dates: start: 20140820

REACTIONS (2)
  - Drug dose omission [None]
  - Headache [None]

NARRATIVE: CASE EVENT DATE: 20141012
